FAERS Safety Report 7111443-X (Version None)
Quarter: 2010Q4

REPORT INFORMATION
  Report Type: 
  Country: None (occurrence: None)
  Receive Date: 20101118
  Receipt Date: 20100510
  Transmission Date: 20110411
  Serious: No
  Sender: FDA-Public Use
  Company Number: US-PFIZER INC-2010059377

PATIENT
  Sex: Female

DRUGS (2)
  1. ZYVOX [Suspect]
     Dosage: 600 MG, 2X/DAY
     Route: 048
     Dates: start: 20100504
  2. DOXYCYCLINE [Concomitant]
     Dosage: UNK

REACTIONS (2)
  - MALAISE [None]
  - PHOTOPHOBIA [None]
